FAERS Safety Report 5704378-8 (Version None)
Quarter: 2008Q2

REPORT INFORMATION
  Report Type: 
  Country: None (occurrence: None)
  Receive Date: 20080414
  Receipt Date: 20080404
  Transmission Date: 20081010
  Serious: Yes (Other)
  Sender: FDA-Public Use
  Company Number: A0722409A

PATIENT
  Age: 40 Year
  Sex: Male

DRUGS (7)
  1. WELLBUTRIN [Suspect]
     Route: 048
     Dates: start: 20071201, end: 20080101
  2. PAIN MEDICATION [Suspect]
     Indication: BACK PAIN
     Route: 037
     Dates: start: 20060701
  3. ZOLOFT [Concomitant]
  4. TOPAMAX [Concomitant]
  5. LYRICA [Concomitant]
  6. BUPIVACAINE [Concomitant]
  7. XANAX [Concomitant]

REACTIONS (10)
  - CHEST DISCOMFORT [None]
  - CHEST PAIN [None]
  - HALLUCINATION, OLFACTORY [None]
  - IRRITABILITY [None]
  - MUSCULAR WEAKNESS [None]
  - NASOPHARYNGITIS [None]
  - PANIC ATTACK [None]
  - PARAESTHESIA [None]
  - PYREXIA [None]
  - SOMNOLENCE [None]
